FAERS Safety Report 23148697 (Version 2)
Quarter: 2023Q4

REPORT INFORMATION
  Report Type: Report from Study
  Country: AR (occurrence: AR)
  Receive Date: 20231106
  Receipt Date: 20231110
  Transmission Date: 20240109
  Serious: Yes (Other)
  Sender: FDA-Public Use
  Company Number: AR-002147023-NVSC2023AR203986

PATIENT
  Sex: Male

DRUGS (3)
  1. COSENTYX [Suspect]
     Active Substance: SECUKINUMAB
     Indication: Psoriatic arthropathy
     Dosage: 300 MG, QW
     Route: 058
     Dates: start: 20230815
  2. COSENTYX [Suspect]
     Active Substance: SECUKINUMAB
     Dosage: 300 MG, QMO
     Route: 058
  3. COSENTYX [Suspect]
     Active Substance: SECUKINUMAB
     Dosage: 300 MG, QD
     Route: 058

REACTIONS (15)
  - Psoriatic arthropathy [Unknown]
  - Retinal artery occlusion [Unknown]
  - Anger [Unknown]
  - Hypersensitivity [Recovered/Resolved]
  - Peripheral swelling [Unknown]
  - Swelling face [Unknown]
  - Tachycardia [Unknown]
  - Eye irritation [Unknown]
  - Skin irritation [Unknown]
  - Mouth swelling [Unknown]
  - Joint swelling [Unknown]
  - Off label use [Unknown]
  - Pain [Unknown]
  - Bone pain [Unknown]
  - Inappropriate schedule of product administration [Unknown]
